FAERS Safety Report 20594967 (Version 1)
Quarter: 2022Q1

REPORT INFORMATION
  Report Type: Spontaneous
  Country: ES (occurrence: ES)
  Receive Date: 20220315
  Receipt Date: 20220315
  Transmission Date: 20220424
  Serious: Yes (Hospitalization, Other)
  Sender: FDA-Public Use
  Company Number: ES-MLMSERVICE-20220225-3401151-1

PATIENT
  Age: 57 Year
  Sex: Male

DRUGS (5)
  1. TACROLIMUS [Suspect]
     Active Substance: TACROLIMUS
     Indication: Immunosuppressant drug therapy
     Dosage: UNK
     Route: 065
  2. BASILIXIMAB [Suspect]
     Active Substance: BASILIXIMAB
     Indication: Immunosuppressant drug therapy
     Dosage: UNK
     Route: 065
  3. MYCOPHENOLATE MOFETIL [Suspect]
     Active Substance: MYCOPHENOLATE MOFETIL
     Indication: Immunosuppressant drug therapy
     Dosage: UNK
     Route: 065
  4. IRON [Concomitant]
     Active Substance: IRON
     Indication: Product used for unknown indication
     Dosage: UNK
     Route: 042
  5. VALSARTAN [Concomitant]
     Active Substance: VALSARTAN
     Indication: Hypertension
     Dosage: UNK
     Route: 065

REACTIONS (9)
  - Device related infection [Recovered/Resolved]
  - Pneumonia pseudomonal [Recovered/Resolved]
  - Herpes zoster [Recovered/Resolved]
  - Enterococcal infection [Recovered/Resolved]
  - Device related bacteraemia [Recovered/Resolved]
  - Pseudomonas infection [Recovered/Resolved]
  - Peritonitis [Recovered/Resolved]
  - Candida infection [Recovered/Resolved]
  - Systemic candida [Recovered/Resolved]
